FAERS Safety Report 7020721-4 (Version None)
Quarter: 2010Q3

REPORT INFORMATION
  Report Type: 
  Country: None (occurrence: None)
  Receive Date: 20100927
  Receipt Date: 20100906
  Transmission Date: 20110219
  Serious: Yes (Life-Threatening, Hospitalization)
  Sender: FDA-Public Use
  Company Number: JPI-P-011921

PATIENT
  Age: 20 Year
  Sex: Male

DRUGS (2)
  1. XYREM [Suspect]
     Indication: NARCOLEPSY
     Dosage: 6 GM, ORAL
     Route: 048
  2. METHYLPHENIDATE HCL [Concomitant]

REACTIONS (2)
  - DEHYDRATION [None]
  - FLUID INTAKE REDUCED [None]
